FAERS Safety Report 24748588 (Version 1)
Quarter: 2024Q4

REPORT INFORMATION
  Report Type: Spontaneous
  Country: US (occurrence: None)
  Receive Date: 20241217
  Receipt Date: 20241217
  Transmission Date: 20250115
  Serious: Yes (Other)
  Sender: Public
  Company Number: None

PATIENT
  Age: 46 Year
  Sex: Female

DRUGS (1)
  1. ZINPLAVA [Suspect]
     Active Substance: BEZLOTOXUMAB
     Dosage: OTHER FREQUENCY : ONCE;?
     Route: 041

REACTIONS (5)
  - Flushing [None]
  - Urticaria [None]
  - Pruritus [None]
  - Tongue pruritus [None]
  - Infusion related reaction [None]

NARRATIVE: CASE EVENT DATE: 20241203
